FAERS Safety Report 6883299-1 (Version None)
Quarter: 2010Q3

REPORT INFORMATION
  Report Type: 
  Country: None (occurrence: None)
  Receive Date: 20100727
  Receipt Date: 20100521
  Transmission Date: 20110219
  Serious: Yes (Hospitalization, Other)
  Sender: FDA-Public Use
  Company Number: LEO-2010-00146

PATIENT
  Age: 30 Year
  Sex: Female
  Weight: 69 kg

DRUGS (8)
  1. INNOHEP [Suspect]
     Indication: THROMBOSIS PROPHYLAXIS
     Dosage: SEE IMAGE
     Route: 058
     Dates: start: 20060524, end: 20060719
  2. INNOHEP [Suspect]
     Indication: THROMBOSIS PROPHYLAXIS
     Dosage: SEE IMAGE
     Route: 058
     Dates: start: 20060719, end: 20061213
  3. INNOHEP [Suspect]
     Indication: THROMBOSIS PROPHYLAXIS
     Dosage: SEE IMAGE
     Route: 058
     Dates: start: 20061213, end: 20070317
  4. ACETAMINOPHEN [Concomitant]
  5. MEPERIDINE HCL [Concomitant]
  6. PHENERGAN (PROMETHAZINE) [Concomitant]
  7. CEPHRADINE [Concomitant]
  8. DEXAMETHASONE [Concomitant]

REACTIONS (7)
  - DRUG EXPOSURE DURING PREGNANCY [None]
  - FIBULA FRACTURE [None]
  - FOETAL HYPOKINESIA [None]
  - NAUSEA [None]
  - PULMONARY EMBOLISM [None]
  - URINARY TRACT INFECTION [None]
  - UTERINE PAIN [None]
